FAERS Safety Report 7518385-6 (Version None)
Quarter: 2011Q2

REPORT INFORMATION
  Report Type: 
  Country: None (occurrence: None)
  Receive Date: 20110602
  Receipt Date: 20110510
  Transmission Date: 20111010
  Serious: No
  Sender: FDA-Public Use
  Company Number: US-B.I. PHARMACEUTICALS,INC./RIDGEFIELD-2011-BP-09986BP

PATIENT
  Age: 87 Year
  Sex: Female
  Weight: 53.07 kg

DRUGS (11)
  1. ASPIRIN [Concomitant]
     Dosage: 81 MG
     Dates: start: 20090722
  2. GLUCOPHAGE [Concomitant]
     Dosage: 1000 MG
     Dates: start: 20090721
  3. HUMALOG [Concomitant]
     Dates: start: 20090721
  4. VITAMIN D [Concomitant]
     Dates: start: 20090721
  5. SYNTHROID [Concomitant]
     Dosage: 25 MCG
     Dates: start: 20090721
  6. PRADAXA [Suspect]
     Indication: ATRIAL FIBRILLATION
     Dosage: 300 MG
     Dates: start: 20101227, end: 20110301
  7. FOSAMAX [Concomitant]
     Dates: start: 20101201
  8. LANTUS [Concomitant]
     Dates: start: 20090721
  9. HYDROCHLOROTHIAZIDE [Concomitant]
     Dosage: 12.5 MG
     Dates: start: 20090818
  10. COZAAR [Concomitant]
     Dosage: 100 MG
     Dates: start: 20100412
  11. PROAIR (ALBUTEROL SULFATE) [Concomitant]
     Dates: start: 20101210

REACTIONS (1)
  - DYSPHAGIA [None]
